FAERS Safety Report 6891716-6 (Version None)
Quarter: 2010Q3

REPORT INFORMATION
  Report Type: 
  Country: None (occurrence: None)
  Receive Date: 20100731
  Receipt Date: 20070926
  Transmission Date: 20110219
  Serious: No
  Sender: FDA-Public Use
  Company Number: US-PFIZER INC-2007080740

PATIENT
  Age: 67 Year
  Sex: Female

DRUGS (1)
  1. FLAGYL [Suspect]
     Indication: INFECTION

REACTIONS (2)
  - HYPOTENSION [None]
  - SYNCOPE [None]
